FAERS Safety Report 16982248 (Version 1)
Quarter: 2019Q4

REPORT INFORMATION
  Report Type: Spontaneous
  Country: US (occurrence: US)
  Receive Date: 20191101
  Receipt Date: 20191101
  Transmission Date: 20200122
  Serious: No
  Sender: FDA-Public Use
  Company Number: US-LUPIN PHARMACEUTICALS INC.-2018-08000

PATIENT
  Age: 74 Year
  Sex: Female

DRUGS (6)
  1. LISINOPRIL TABLETS USP, 30MG [Suspect]
     Active Substance: LISINOPRIL
     Indication: HYPERTENSION
     Dosage: 30 MG, QD OLD LARGER SIZED TABLETS
     Route: 048
  2. LISINOPRIL TABLETS USP, 30MG [Suspect]
     Active Substance: LISINOPRIL
     Dosage: 30 MG, QD NEWER SIZED
     Route: 048
     Dates: start: 201810
  3. CLOPIDOGREL [Concomitant]
     Active Substance: CLOPIDOGREL BISULFATE
     Indication: PROPHYLAXIS
     Dosage: 75 MG, QD
     Route: 048
  4. METOPROLOL TARTRATE. [Concomitant]
     Active Substance: METOPROLOL TARTRATE
     Indication: HYPERTENSION
     Dosage: 25 MG, BID
     Route: 048
  5. AMLODIPINE [Concomitant]
     Active Substance: AMLODIPINE BESYLATE
     Indication: HYPERTENSION
     Dosage: 10 MG, QD
     Route: 048
  6. PROAIR HFA [Concomitant]
     Active Substance: ALBUTEROL SULFATE
     Indication: ASTHMA
     Dosage: 2 DF (PUFFS), PRN
     Route: 045

REACTIONS (1)
  - Lip swelling [Recovering/Resolving]

NARRATIVE: CASE EVENT DATE: 20181015
